FAERS Safety Report 11533285 (Version 2)
Quarter: 2015Q4

REPORT INFORMATION
  Report Type: Spontaneous
  Country: US (occurrence: US)
  Receive Date: 20150921
  Receipt Date: 20151015
  Transmission Date: 20160304
  Serious: No
  Sender: FDA-Public Use
  Company Number: US-GLAXOSMITHKLINE-US2015131917

PATIENT
  Sex: Female

DRUGS (4)
  1. COREG [Suspect]
     Active Substance: CARVEDILOL
     Indication: CARDIAC FAILURE
     Dosage: 50 MG, BID
     Route: 048
     Dates: start: 2004
  2. AMLODIPINE [Suspect]
     Active Substance: AMLODIPINE BESYLATE
     Indication: PRODUCT USED FOR UNKNOWN INDICATION
     Dosage: UNK
  3. POTASSIUM [Concomitant]
     Active Substance: POTASSIUM
  4. FUROSEMIDE. [Concomitant]
     Active Substance: FUROSEMIDE

REACTIONS (8)
  - Condition aggravated [Unknown]
  - Visual impairment [Recovering/Resolving]
  - Adverse drug reaction [Unknown]
  - Paraesthesia [Unknown]
  - Drug interaction [Unknown]
  - Prescribed overdose [Unknown]
  - Muscle tightness [Not Recovered/Not Resolved]
  - Depression [Not Recovered/Not Resolved]

NARRATIVE: CASE EVENT DATE: 2004
